FAERS Safety Report 14473517 (Version 1)
Quarter: 2018Q1

REPORT INFORMATION
  Report Type: Spontaneous
  Country: US (occurrence: US)
  Receive Date: 20180201
  Receipt Date: 20180201
  Transmission Date: 20180509
  Serious: Yes (Other)
  Sender: FDA-Public Use
  Company Number: US-PROCTER_AND_GAMBLE-GS18011161

PATIENT
  Age: 55 Year
  Sex: Female

DRUGS (1)
  1. CREST PRO-HEALTH CLINICAL GUM PROTECTION [Suspect]
     Active Substance: STANNOUS FLUORIDE
     Dosage: AN INCH LONG OF PRODUCT ON THE BRUSH HEAD, USED IT TWICE YESTERDAY AND TODAY
     Route: 002
     Dates: start: 20180125, end: 20180126

REACTIONS (2)
  - Tongue disorder [Recovered/Resolved]
  - Seizure [Recovered/Resolved]

NARRATIVE: CASE EVENT DATE: 20180125
